FAERS Safety Report 18558373 (Version 1)
Quarter: 2020Q4

REPORT INFORMATION
  Report Type: Other
  Country: US (occurrence: US)
  Receive Date: 20201130
  Receipt Date: 20201130
  Transmission Date: 20210114
  Serious: No
  Sender: FDA-Public Use
  Company Number: US-ROCHE-2716703

PATIENT
  Sex: Female

DRUGS (1)
  1. OCREVUS [Suspect]
     Active Substance: OCRELIZUMAB
     Indication: RELAPSING MULTIPLE SCLEROSIS
     Dosage: ON DAY 1 AND DAY 15 SUBSEQUENT DOSE 600 MG Q 6 MONTH AFTER LEADING?NEXT INFUSIONS RECEIVED ON 20/AUG
     Route: 042
     Dates: start: 20190806

REACTIONS (3)
  - JC polyomavirus test positive [Unknown]
  - Decreased activity [Not Recovered/Not Resolved]
  - Feeling abnormal [Not Recovered/Not Resolved]
